FAERS Safety Report 18500851 (Version 1)
Quarter: 2020Q4

REPORT INFORMATION
  Report Type: Spontaneous
  Country: US (occurrence: US)
  Receive Date: 20201113
  Receipt Date: 20201113
  Transmission Date: 20210114
  Serious: Yes (Hospitalization)
  Sender: FDA-Public Use
  Company Number: US-ELI_LILLY_AND_COMPANY-US202011002112

PATIENT
  Age: 70 Year
  Sex: Female

DRUGS (2)
  1. TRULICITY [Suspect]
     Active Substance: DULAGLUTIDE
     Indication: DIABETES MELLITUS
     Dosage: 1.5 MG, UNKNOWN
     Route: 065
     Dates: start: 2016
  2. JARDIANCE [Concomitant]
     Active Substance: EMPAGLIFLOZIN
     Indication: DIABETES MELLITUS

REACTIONS (4)
  - Hip fracture [Recovering/Resolving]
  - Infected skin ulcer [Unknown]
  - Mental impairment [Unknown]
  - Decubitus ulcer [Recovering/Resolving]

NARRATIVE: CASE EVENT DATE: 20200130
